FAERS Safety Report 20470636 (Version 1)
Quarter: 2022Q1

REPORT INFORMATION
  Report Type: Report from Study
  Country: US (occurrence: US)
  Receive Date: 20220214
  Receipt Date: 20220214
  Transmission Date: 20220423
  Serious: Yes (Hospitalization, Other)
  Sender: FDA-Public Use
  Company Number: US-BAUSCH-BL-2021-027835

PATIENT
  Age: 68 Year
  Sex: Male

DRUGS (1)
  1. XENAZINE [Suspect]
     Active Substance: TETRABENAZINE
     Indication: Huntington^s disease
     Route: 048

REACTIONS (5)
  - Loss of consciousness [Unknown]
  - Infection [Unknown]
  - Lower limb fracture [Not Recovered/Not Resolved]
  - Contusion [Unknown]
  - Therapy interrupted [Unknown]
